FAERS Safety Report 13545058 (Version 1)
Quarter: 2017Q2

REPORT INFORMATION
  Report Type: Report from Study
  Country: IN (occurrence: IN)
  Receive Date: 20170515
  Receipt Date: 20170515
  Transmission Date: 20170830
  Serious: Yes (Death, Other)
  Sender: FDA-Public Use
  Company Number: IN-B.I. PHARMACEUTICALS,INC./RIDGEFIELD-2017-BI-026793

PATIENT
  Age: 54 Year
  Sex: Male

DRUGS (5)
  1. GEFITINIB [Concomitant]
     Active Substance: GEFITINIB
     Indication: EGFR GENE MUTATION
     Route: 065
  2. CRIZOTINIB [Concomitant]
     Active Substance: CRIZOTINIB
     Indication: PRODUCT USED FOR UNKNOWN INDICATION
     Route: 065
  3. OSIMERTINIB [Concomitant]
     Active Substance: OSIMERTINIB
     Indication: PRODUCT USED FOR UNKNOWN INDICATION
     Route: 065
  4. GILOTRIF [Suspect]
     Active Substance: AFATINIB
     Indication: EGFR GENE MUTATION
     Route: 065
  5. GILOTRIF [Suspect]
     Active Substance: AFATINIB
     Indication: LUNG ADENOCARCINOMA

REACTIONS (3)
  - Deep vein thrombosis [Fatal]
  - Condition aggravated [Unknown]
  - Pulmonary embolism [Fatal]
